FAERS Safety Report 12667903 (Version 2)
Quarter: 2016Q3

REPORT INFORMATION
  Report Type: Report from Study
  Country: DE (occurrence: DE)
  Receive Date: 20160819
  Receipt Date: 20160914
  Transmission Date: 20161109
  Serious: Yes (Death)
  Sender: FDA-Public Use
  Company Number: DE-PFIZER INC-2016382853

PATIENT

DRUGS (10)
  1. CYTARABINE. [Suspect]
     Active Substance: CYTARABINE
     Indication: LYMPHOMA
     Dosage: 3 G/M2 (DAYS 2 AND 3)
  2. THIOTEPA. [Suspect]
     Active Substance: THIOTEPA
     Indication: LYMPHOMA
     Dosage: 40 MG/M2, CYCLIC (DAY 3)
  3. RITUXIMAB [Suspect]
     Active Substance: RITUXIMAB
     Indication: LYMPHOMA
     Dosage: 375 MG/M2, CYCLIC (7 DAYS BEFORE FIRST HIGH-DOSE METHOTREXATE COURSE AND DAYS 0, 10, 20, AND 30)
     Route: 042
  4. CARMUSTINE [Suspect]
     Active Substance: CARMUSTINE
     Indication: LYMPHOMA
     Dosage: 400 MG/M2, (DAY 2)
  5. FOLINIC ACID [Concomitant]
     Active Substance: LEUCOVORIN
     Indication: SUPPORTIVE CARE
     Dosage: 15 MG/M2 AT LEAST EVERY 6 HOURS
  6. METHOTREXATE SODIUM. [Suspect]
     Active Substance: METHOTREXATE SODIUM
     Indication: LYMPHOMA
     Dosage: 8000 MG/M2, (DAYS 1, 11, 21, AND 31)
     Route: 042
  7. PEGFILGRASTIM [Concomitant]
     Active Substance: PEGFILGRASTIM
     Dosage: 6 MG, (4 DAYS AFTER AUTOLOGOUS STEM CELL REINFUSION)
     Route: 058
  8. FILGRASTIM [Concomitant]
     Active Substance: FILGRASTIM
     Dosage: 300 UG, CYCLIC (DAYS 6-10 WITH 21 DAY BREAK)
  9. RITUXIMAB [Suspect]
     Active Substance: RITUXIMAB
     Dosage: 375 MG/M2, CYCLIC (DAY 1)
     Route: 042
  10. THIOTEPA. [Suspect]
     Active Substance: THIOTEPA
     Dosage: 5 MG/KG, UNK (2 ? 5 MG/KG [DAYS 3 AND 4])

REACTIONS (1)
  - Pneumonia [Fatal]
